FAERS Safety Report 5117843-1 (Version None)
Quarter: 2006Q3

REPORT INFORMATION
  Report Type: 
  Country: None (occurrence: None)
  Receive Date: 20060929
  Receipt Date: 20060710
  Transmission Date: 20061208
  Serious: Yes (Hospitalization)
  Sender: FDA-Public Use
  Company Number: CA-SANOFI-SYNTHELABO-F01200601639

PATIENT
  Age: 61 Year
  Sex: Male

DRUGS (5)
  1. BISOPROLOL FUMARATE [Concomitant]
     Indication: HYPERTENSION
     Dosage: UNK
     Route: 048
  2. ADALAT [Concomitant]
     Indication: HYPERTENSION
     Dosage: UNK
     Route: 048
  3. LEUCOVORIN CALCIUM [Suspect]
     Indication: COLORECTAL CANCER
     Route: 042
     Dates: start: 20060710, end: 20060710
  4. ELOXATIN [Suspect]
     Indication: COLORECTAL CANCER
     Route: 017
     Dates: start: 20060710, end: 20060710
  5. LIPITOR [Concomitant]
     Indication: HYPERCHOLESTEROLAEMIA
     Dosage: UNK
     Route: 048

REACTIONS (3)
  - CHEST PAIN [None]
  - PAIN [None]
  - PLEURAL EFFUSION [None]
